FAERS Safety Report 7354363-8 (Version None)
Quarter: 2011Q1

REPORT INFORMATION
  Report Type: 
  Country: None (occurrence: None)
  Receive Date: 20110316
  Receipt Date: 20110307
  Transmission Date: 20110831
  Serious: Yes (Hospitalization)
  Sender: FDA-Public Use
  Company Number: US-JNJFOC-20110304151

PATIENT
  Sex: Female
  Weight: 58.97 kg

DRUGS (5)
  1. UNKNOWN MEDICATION [Concomitant]
     Indication: OSTEOPOROSIS
     Route: 048
  2. LEVAQUIN [Suspect]
     Route: 048
  3. ATENOLOL [Concomitant]
     Indication: BLOOD PRESSURE
     Route: 048
  4. LEVAQUIN [Suspect]
     Indication: PNEUMONIA
     Route: 042
  5. UNKNOWN MEDICATION [Concomitant]
     Indication: URINARY RETENTION
     Route: 048

REACTIONS (4)
  - APHASIA [None]
  - CONFUSIONAL STATE [None]
  - CONVULSION [None]
  - INJECTION SITE REACTION [None]
